FAERS Safety Report 11752557 (Version 3)
Quarter: 2017Q3

REPORT INFORMATION
  Report Type: Report from Study
  Country: US (occurrence: US)
  Receive Date: 20151119
  Receipt Date: 20170815
  Transmission Date: 20171127
  Serious: Yes (Other)
  Sender: FDA-Public Use
  Company Number: US-ROCHE-1659372

PATIENT
  Sex: Male

DRUGS (8)
  1. CARBOPLATIN. [Suspect]
     Active Substance: CARBOPLATIN
     Indication: GERM CELL NEOPLASM
     Dosage: OVER 2 HOURS
     Route: 042
  2. MESNA. [Suspect]
     Active Substance: MESNA
     Indication: GERM CELL NEOPLASM
     Dosage: OVER 96 HOURS
     Route: 042
  3. BEVACIZUMAB. [Suspect]
     Active Substance: BEVACIZUMAB
     Indication: GERM CELL NEOPLASM
     Route: 042
  4. GEMCITABINE [Suspect]
     Active Substance: GEMCITABINE\GEMCITABINE HYDROCHLORIDE
     Indication: GERM CELL NEOPLASM
     Dosage: OVER 3 HOURS
     Route: 042
  5. IFOSFAMIDE. [Suspect]
     Active Substance: IFOSFAMIDE
     Indication: GERM CELL NEOPLASM
     Dosage: OVER 6 HOURS
     Route: 042
  6. MELPHALAN. [Suspect]
     Active Substance: MELPHALAN
     Indication: GERM CELL NEOPLASM
     Dosage: OVER 15 MINUTES
     Route: 042
  7. DOCETAXEL. [Suspect]
     Active Substance: DOCETAXEL
     Indication: GERM CELL NEOPLASM
     Dosage: OVER 3 HOURS
     Route: 042
  8. ETOPOSIDE. [Suspect]
     Active Substance: ETOPOSIDE
     Indication: GERM CELL NEOPLASM
     Dosage: OVER 3 HOURS
     Route: 042

REACTIONS (12)
  - Blood bilirubin increased [Unknown]
  - Mucosal inflammation [Unknown]
  - Palmar-plantar erythrodysaesthesia syndrome [Unknown]
  - Diarrhoea [Unknown]
  - Encephalopathy [Unknown]
  - Nephropathy toxic [Unknown]
  - Transaminases increased [Unknown]
  - Rash [Unknown]
  - Neuropathy peripheral [Unknown]
  - Hypertension [Unknown]
  - End stage renal disease [Unknown]
  - Epistaxis [Unknown]
